FAERS Safety Report 8571262-4 (Version None)
Quarter: 2012Q3

REPORT INFORMATION
  Report Type: 
  Country: None (occurrence: None)
  Receive Date: 20120730
  Receipt Date: 20120730
  Transmission Date: 20120928
  Serious: No
  Sender: FDA-Public Use
  Company Number: None

PATIENT
  Age: 50 Year
  Sex: Male
  Weight: 66.4 kg

DRUGS (1)
  1. DAPSONE [Suspect]
     Indication: HIV INFECTION
     Dosage: 100 MG EVERY DAY PO
     Route: 048
     Dates: start: 20120109, end: 20120409

REACTIONS (1)
  - HAEMOLYTIC ANAEMIA [None]
